FAERS Safety Report 14122971 (Version 1)
Quarter: 2017Q4

REPORT INFORMATION
  Report Type: Spontaneous
  Country: US (occurrence: US)
  Receive Date: 20171024
  Receipt Date: 20171024
  Transmission Date: 20180321
  Serious: Yes (Other)
  Sender: FDA-Public Use
  Company Number: None

PATIENT
  Sex: Female

DRUGS (2)
  1. ESTRADIOL. [Suspect]
     Active Substance: ESTRADIOL
     Indication: HORMONE LEVEL ABNORMAL
     Dosage: ?          OTHER FREQUENCY:WEEKLY;?
     Route: 061
     Dates: start: 20170810, end: 20170925
  2. ESTRADIOL. [Suspect]
     Active Substance: ESTRADIOL
     Indication: MENOPAUSE
     Dosage: ?          OTHER FREQUENCY:WEEKLY;?
     Route: 061
     Dates: start: 20170810, end: 20170925

REACTIONS (2)
  - Dermatitis contact [None]
  - Rash [None]
